FAERS Safety Report 10101245 (Version 1)
Quarter: 2014Q2

REPORT INFORMATION
  Report Type: Spontaneous
  Country: US (occurrence: None)
  Receive Date: 20140423
  Receipt Date: 20140423
  Transmission Date: 20141212
  Serious: Yes (Other)
  Sender: FDA-Public Use
  Company Number: None

PATIENT
  Age: 43 Year
  Sex: Male
  Weight: 63.5 kg

DRUGS (1)
  1. D-AMPHETAMINE ER [Suspect]
     Indication: ATTENTION DEFICIT/HYPERACTIVITY DISORDER
     Route: 048
     Dates: start: 20111215, end: 20140115

REACTIONS (2)
  - Attention deficit/hyperactivity disorder [None]
  - Condition aggravated [None]
